FAERS Safety Report 6566835-4 (Version None)
Quarter: 2010Q1

REPORT INFORMATION
  Report Type: 
  Country: None (occurrence: None)
  Receive Date: 20100202
  Receipt Date: 20100125
  Transmission Date: 20100710
  Serious: Yes (Hospitalization)
  Sender: FDA-Public Use
  Company Number: A0842188A

PATIENT
  Age: 57 Year
  Sex: Female

DRUGS (1)
  1. AVANDIA [Suspect]
     Route: 065
     Dates: start: 20050101, end: 20060101

REACTIONS (1)
  - CEREBROVASCULAR ACCIDENT [None]
